FAERS Safety Report 9514549 (Version 1)
Quarter: 2013Q3

REPORT INFORMATION
  Report Type: Spontaneous
  Country: CA (occurrence: CA)
  Receive Date: 20130911
  Receipt Date: 20130911
  Transmission Date: 20140515
  Serious: Yes (Disabling)
  Sender: FDA-Public Use
  Company Number: CA-ROCHE-1273097

PATIENT
  Age: 76 Year
  Sex: Female
  Weight: 49 kg

DRUGS (10)
  1. CEFTRIAXONE [Suspect]
     Indication: PRODUCT USED FOR UNKNOWN INDICATION
     Dosage: THERAPY DURATION: 3.0 DAYS
     Route: 042
  2. METRONIDAZOLE [Suspect]
     Indication: PRODUCT USED FOR UNKNOWN INDICATION
     Dosage: FORM STRENGTH: 5 MG/ML, THERAPY DURATION: 4 DAYS
     Route: 042
  3. ATROPINE [Concomitant]
     Route: 047
  4. BISACODYL [Concomitant]
     Route: 054
  5. CALCIUM CARBONATE [Concomitant]
     Route: 048
  6. CHOLECALCIFEROL [Concomitant]
     Route: 048
  7. ENTERIC COATED ASA [Concomitant]
     Route: 048
  8. HYPROMELLOSE [Concomitant]
     Route: 047
  9. SENOKOT [Concomitant]
     Route: 048
  10. SINEMET [Concomitant]
     Dosage: FORM STRENGTH: 100/25
     Route: 048

REACTIONS (1)
  - Petechiae [Unknown]
